FAERS Safety Report 25900387 (Version 2)
Quarter: 2025Q4

REPORT INFORMATION
  Report Type: Spontaneous
  Country: US (occurrence: US)
  Receive Date: 20251009
  Receipt Date: 20251024
  Transmission Date: 20260118
  Serious: Yes (Other)
  Sender: ROCHE
  Company Number: US-ROCHE-10000401762

PATIENT
  Sex: Female

DRUGS (1)
  1. ACTEMRA [Suspect]
     Active Substance: TOCILIZUMAB
     Indication: Birdshot chorioretinopathy
     Route: 042
     Dates: start: 202502

REACTIONS (4)
  - Off label use [Unknown]
  - Gingivitis [Unknown]
  - Tooth disorder [Unknown]
  - Breast cancer [Unknown]
